FAERS Safety Report 7808824-5 (Version None)
Quarter: 2011Q4

REPORT INFORMATION
  Report Type: 
  Country: None (occurrence: None)
  Receive Date: 20111012
  Receipt Date: 20111005
  Transmission Date: 20120403
  Serious: Yes (Hospitalization)
  Sender: FDA-Public Use
  Company Number: PHHY2011BR79955

PATIENT
  Sex: Male

DRUGS (1)
  1. RASILEZ [Suspect]
     Dosage: HALF TABLET DAILY

REACTIONS (3)
  - INCORRECT DOSE ADMINISTERED [None]
  - INFARCTION [None]
  - ASTHENIA [None]
